FAERS Safety Report 18524996 (Version 1)
Quarter: 2020Q4

REPORT INFORMATION
  Report Type: Report from Study
  Country: ES (occurrence: ES)
  Receive Date: 20201119
  Receipt Date: 20201119
  Transmission Date: 20210114
  Serious: Yes (Other)
  Sender: FDA-Public Use
  Company Number: ES-CELGENEUS-ESP-20201103721

PATIENT
  Age: 82 Year
  Sex: Female
  Weight: 52 kg

DRUGS (6)
  1. DEXAMETHASONE. [Suspect]
     Active Substance: DEXAMETHASONE
     Indication: PLASMA CELL MYELOMA
     Route: 048
     Dates: start: 20180514, end: 20190524
  2. LENALIDOMIDE [Suspect]
     Active Substance: LENALIDOMIDE
     Route: 048
     Dates: start: 2019, end: 20190614
  3. CLARITHROMYCIN. [Suspect]
     Active Substance: CLARITHROMYCIN
     Route: 048
     Dates: start: 2019, end: 20190614
  4. LENALIDOMIDE [Suspect]
     Active Substance: LENALIDOMIDE
     Indication: PLASMA CELL MYELOMA
     Route: 048
     Dates: start: 20180514, end: 20190523
  5. CLARITHROMYCIN. [Suspect]
     Active Substance: CLARITHROMYCIN
     Indication: PLASMA CELL MYELOMA
     Route: 048
     Dates: start: 20180514, end: 20190530
  6. DEXAMETHASONE. [Suspect]
     Active Substance: DEXAMETHASONE
     Route: 048
     Dates: start: 2019, end: 20190614

REACTIONS (1)
  - Adenocarcinoma of colon [Not Recovered/Not Resolved]

NARRATIVE: CASE EVENT DATE: 20190607
